FAERS Safety Report 12846941 (Version 5)
Quarter: 2019Q1

REPORT INFORMATION
  Report Type: Report from Study
  Country: BR (occurrence: BR)
  Receive Date: 20161014
  Receipt Date: 20190329
  Transmission Date: 20190417
  Serious: Yes (Life-Threatening, Hospitalization, Other)
  Sender: FDA-Public Use
  Company Number: PHHY2014BR132536

PATIENT
  Age: 53 Year
  Sex: Male
  Weight: 104 kg

DRUGS (11)
  1. PURAN [Concomitant]
     Active Substance: LEVOTHYROXINE SODIUM
     Indication: HYPOTHYROIDISM
     Dosage: 1 DF, QD (MORNING IN FASTING)
     Route: 065
     Dates: start: 2011
  2. DURATESTON [Concomitant]
     Active Substance: TESTOSTERONE
     Indication: HORMONE LEVEL ABNORMAL
     Dosage: UNK, EVERY 20 DAYS
     Route: 065
  3. CABERGOLINE. [Suspect]
     Active Substance: CABERGOLINE
     Indication: ACROMEGALY
     Dosage: 3 DF, QW3
     Route: 065
  4. SANDOSTATIN LAR DEPOT [Suspect]
     Active Substance: OCTREOTIDE ACETATE
     Indication: ACROMEGALY
     Dosage: 20 MG, QMO
     Route: 030
     Dates: start: 2010
  5. PURAN [Concomitant]
     Active Substance: LEVOTHYROXINE SODIUM
     Indication: HYPOTHYROIDISM
  6. DUFASTON [Concomitant]
     Active Substance: DYDROGESTERONE
     Indication: PRODUCT USED FOR UNKNOWN INDICATION
     Dosage: 1 DF, EVERY 20 DAYS
     Route: 030
  7. SIMVASTATIN. [Concomitant]
     Active Substance: SIMVASTATIN
     Indication: BLOOD CHOLESTEROL INCREASED
     Dosage: 1 DF, (AT NIGHT)
     Route: 048
     Dates: start: 2011
  8. SANDOSTATIN LAR DEPOT [Suspect]
     Active Substance: OCTREOTIDE ACETATE
     Dosage: 30 MG, QMO
     Route: 030
     Dates: start: 2011
  9. CABERGOLINE. [Suspect]
     Active Substance: CABERGOLINE
     Dosage: UNK, QW2 (MONDAY AND THURSDAY)
     Route: 065
     Dates: start: 2011
  10. SANDOSTATIN LAR DEPOT [Suspect]
     Active Substance: OCTREOTIDE ACETATE
     Dosage: 20 MG, QMO (EVERY 30 DAYS)
     Route: 030
     Dates: start: 201105, end: 20190307
  11. CABERGOLINE. [Suspect]
     Active Substance: CABERGOLINE
     Dosage: 2 DF, QD
     Route: 048

REACTIONS (23)
  - Blood growth hormone increased [Recovering/Resolving]
  - Thyroid disorder [Not Recovered/Not Resolved]
  - Tendonitis [Not Recovered/Not Resolved]
  - Cholelithiasis [Recovered/Resolved]
  - Bladder pain [Recovered/Resolved]
  - Benign prostatic hyperplasia [Recovered/Resolved]
  - Erythema [Recovered/Resolved]
  - Prostatic disorder [Recovering/Resolving]
  - Flushing [Recovering/Resolving]
  - Thyroid mass [Unknown]
  - Swelling face [Not Recovered/Not Resolved]
  - Fatigue [Not Recovered/Not Resolved]
  - Pain [Not Recovered/Not Resolved]
  - Infection [Recovered/Resolved]
  - Urinary tract infection [Unknown]
  - Hypertension [Recovering/Resolving]
  - Urinary retention [Recovered/Resolved]
  - Mood altered [Unknown]
  - Abdominal pain [Recovered/Resolved]
  - Depressed mood [Not Recovered/Not Resolved]
  - Cardiomegaly [Not Recovered/Not Resolved]
  - Malaise [Unknown]
  - Nervousness [Not Recovered/Not Resolved]

NARRATIVE: CASE EVENT DATE: 201808
